FAERS Safety Report 13920802 (Version 2)
Quarter: 2017Q3

REPORT INFORMATION
  Report Type: Spontaneous
  Country: CA (occurrence: CA)
  Receive Date: 20170830
  Receipt Date: 20170831
  Transmission Date: 20171127
  Serious: Yes (Hospitalization, Other)
  Sender: FDA-Public Use
  Company Number: CA-ASTRAZENECA-2017SE86495

PATIENT
  Age: 24969 Day
  Sex: Male
  Weight: 83.5 kg

DRUGS (11)
  1. BRILINTA [Suspect]
     Active Substance: TICAGRELOR
     Indication: STENT PLACEMENT
     Route: 048
     Dates: start: 20160615, end: 20170818
  2. ASPIRIN. [Concomitant]
     Active Substance: ASPIRIN
     Indication: SUPPLEMENTATION THERAPY
     Route: 048
     Dates: start: 20160615
  3. LIPITOR [Concomitant]
     Active Substance: ATORVASTATIN CALCIUM
     Indication: BLOOD PRESSURE ABNORMAL
     Route: 048
     Dates: start: 20160615
  4. LIPITOR [Concomitant]
     Active Substance: ATORVASTATIN CALCIUM
     Indication: BLOOD PRESSURE ABNORMAL
     Route: 048
     Dates: start: 20170808
  5. BRILINTA [Suspect]
     Active Substance: TICAGRELOR
     Indication: MYOCARDIAL INFARCTION
     Route: 048
     Dates: start: 20160615, end: 20170818
  6. BISOPROLOL [Concomitant]
     Active Substance: BISOPROLOL
     Indication: SUPPLEMENTATION THERAPY
     Dosage: 7.5MG UNKNOWN
     Route: 048
     Dates: end: 201704
  7. BISOPROLOL [Concomitant]
     Active Substance: BISOPROLOL
     Indication: SUPPLEMENTATION THERAPY
     Route: 048
     Dates: start: 20160615
  8. LIPITOR [Concomitant]
     Active Substance: ATORVASTATIN CALCIUM
     Indication: SUPPLEMENTATION THERAPY
     Route: 048
     Dates: start: 20160615
  9. LIPITOR [Concomitant]
     Active Substance: ATORVASTATIN CALCIUM
     Indication: SUPPLEMENTATION THERAPY
     Route: 048
     Dates: start: 20170808
  10. COVERSYL [Concomitant]
     Active Substance: PERINDOPRIL
     Indication: BLOOD PRESSURE ABNORMAL
     Route: 048
     Dates: start: 20160615
  11. BISOPROLOL [Concomitant]
     Active Substance: BISOPROLOL
     Indication: SUPPLEMENTATION THERAPY
     Dosage: 5.0MG UNKNOWN
     Route: 048

REACTIONS (10)
  - Fibromyalgia [Unknown]
  - Heart rate decreased [Unknown]
  - Pain [Unknown]
  - Palpitations [Unknown]
  - Blood pressure decreased [Unknown]
  - Sleep disorder due to general medical condition, insomnia type [Unknown]
  - Hyperhidrosis [Unknown]
  - Cardiac discomfort [Unknown]
  - Pain in extremity [Unknown]
  - Intentional product use issue [Unknown]

NARRATIVE: CASE EVENT DATE: 20160615
